FAERS Safety Report 14980300 (Version 1)
Quarter: 2018Q2

REPORT INFORMATION
  Report Type: Report from Study
  Country: FR (occurrence: FR)
  Receive Date: 20180606
  Receipt Date: 20180606
  Transmission Date: 20180711
  Serious: Yes (Hospitalization)
  Sender: FDA-Public Use
  Company Number: FR-PFIZER INC-2018226189

PATIENT
  Age: 81 Year
  Sex: Female
  Weight: 45 kg

DRUGS (11)
  1. FLUOROURACIL. [Suspect]
     Active Substance: FLUOROURACIL
     Indication: COLORECTAL CANCER METASTATIC
     Dosage: 620 MG, CYCLIC
     Route: 040
     Dates: start: 20150306, end: 20150306
  2. FLUOROURACIL. [Suspect]
     Active Substance: FLUOROURACIL
     Dosage: 3650 MG, CYCLIC
     Route: 041
     Dates: start: 20150513, end: 20150513
  3. IRINOTECAN HCL [Suspect]
     Active Substance: IRINOTECAN HYDROCHLORIDE
     Dosage: 270 MG, CYCLIC
     Route: 041
     Dates: start: 20150513, end: 20150513
  4. ZALTRAP [Suspect]
     Active Substance: ZIV-AFLIBERCEPT
     Dosage: 220 MG, CYCLIC
     Route: 041
     Dates: start: 20150513, end: 20150513
  5. VITAMIN E /00110501/ [Concomitant]
     Active Substance: TOCOPHEROL
     Dosage: UNK
     Dates: start: 20150513
  6. FLUOROURACIL. [Suspect]
     Active Substance: FLUOROURACIL
     Dosage: 3720 MG, CYCLIC
     Route: 041
     Dates: start: 20150306, end: 20150306
  7. FLUOROURACIL. [Suspect]
     Active Substance: FLUOROURACIL
     Dosage: 610 MG, CYCLIC
     Route: 040
     Dates: start: 20150513, end: 20150513
  8. IRINOTECAN HCL [Suspect]
     Active Substance: IRINOTECAN HYDROCHLORIDE
     Indication: COLORECTAL CANCER METASTATIC
     Dosage: 280 MG, CYCLIC
     Route: 041
     Dates: start: 20150306, end: 20150306
  9. CALCIUM FOLINATE [Suspect]
     Active Substance: LEUCOVORIN CALCIUM
     Indication: COLORECTAL CANCER METASTATIC
     Dosage: 310 MG, CYCLIC
     Route: 041
     Dates: start: 20150306, end: 20150306
  10. CALCIUM FOLINATE [Suspect]
     Active Substance: LEUCOVORIN CALCIUM
     Dosage: 300 MG, CYCLIC
     Route: 041
     Dates: start: 20150513, end: 20150513
  11. ZALTRAP [Suspect]
     Active Substance: ZIV-AFLIBERCEPT
     Indication: COLORECTAL CANCER METASTATIC
     Dosage: 230 MG, CYCLIC
     Route: 041
     Dates: start: 20150306, end: 20150306

REACTIONS (3)
  - Mucosal inflammation [Recovered/Resolved]
  - General physical health deterioration [Recovered/Resolved]
  - Exfoliative rash [Recovered/Resolved]

NARRATIVE: CASE EVENT DATE: 20150514
